FAERS Safety Report 6816962-9 (Version None)
Quarter: 2010Q3

REPORT INFORMATION
  Report Type: 
  Country: None (occurrence: None)
  Receive Date: 20100706
  Receipt Date: 20100608
  Transmission Date: 20110219
  Serious: Yes (Other)
  Sender: FDA-Public Use
  Company Number: PHHY2010BE38190

PATIENT
  Sex: Female

DRUGS (9)
  1. SANDOSTATIN LAR [Suspect]
     Indication: DIARRHOEA
     Dosage: UNK
     Route: 030
     Dates: start: 20080101
  2. SANDOSTATIN [Suspect]
     Dosage: UNK
     Route: 058
     Dates: start: 20080501, end: 20080601
  3. NOZINAN [Concomitant]
     Dosage: 5 MG, BID
  4. BUSCOPAN [Concomitant]
     Dosage: 4 TIMES PER DAY
  5. SPASMOMEN [Concomitant]
     Dosage: 3 TABLETS DAILY
  6. BAREXAL [Concomitant]
     Dosage: DAILY
  7. DEPO-PROVERA [Concomitant]
     Dosage: EVERY THREE MONTHS
  8. OKACIN [Concomitant]
  9. DURATEARS [Concomitant]

REACTIONS (4)
  - DIARRHOEA [None]
  - DRUG INEFFECTIVE [None]
  - INJECTION SITE PAIN [None]
  - PRODUCT SOLUBILITY ABNORMAL [None]
